FAERS Safety Report 9511518 (Version 1)
Quarter: 2013Q3

REPORT INFORMATION
  Report Type: Spontaneous
  Country: US (occurrence: None)
  Receive Date: 20130909
  Receipt Date: 20130909
  Transmission Date: 20140515
  Serious: Yes (Disabling, Other)
  Sender: FDA-Public Use
  Company Number: None

PATIENT
  Age: 49 Year
  Sex: Female
  Weight: 60.33 kg

DRUGS (1)
  1. FLUTICASONE PROPIONATE [Suspect]
     Indication: SINUSITIS
     Dosage: 1 SPRAY EACH NOSTRIL TWICE DAILY INHALATION
     Route: 055
     Dates: start: 20090915, end: 20130906

REACTIONS (3)
  - Anosmia [None]
  - Ageusia [None]
  - Parosmia [None]
